FAERS Safety Report 25415866 (Version 1)
Quarter: 2025Q2

REPORT INFORMATION
  Report Type: Spontaneous
  Country: US (occurrence: US)
  Receive Date: 20250610
  Receipt Date: 20250610
  Transmission Date: 20250716
  Serious: Yes (Other)
  Sender: NOVO NORDISK
  Company Number: US-NOVOPROD-1450658

PATIENT
  Sex: Male

DRUGS (1)
  1. OZEMPIC [Suspect]
     Active Substance: SEMAGLUTIDE
     Indication: Product used for unknown indication

REACTIONS (6)
  - Road traffic accident [Unknown]
  - Hand fracture [Unknown]
  - Wrist fracture [Unknown]
  - Upper limb fracture [Unknown]
  - Ligament rupture [Unknown]
  - Tendon injury [Unknown]

NARRATIVE: CASE EVENT DATE: 20250528
